FAERS Safety Report 12557712 (Version 1)
Quarter: 2016Q3

REPORT INFORMATION
  Report Type: Spontaneous
  Country: US (occurrence: US)
  Receive Date: 20160714
  Receipt Date: 20160714
  Transmission Date: 20161109
  Serious: Yes (Life-Threatening, Other)
  Sender: FDA-Public Use
  Company Number: US-STANDARD HOMEOPATHIC COMPANY-1055066

PATIENT
  Age: 65 Year
  Sex: Male

DRUGS (1)
  1. NERVE TONIC [Suspect]
     Active Substance: HOMEOPATHICS
     Indication: NERVOUSNESS
     Route: 048
     Dates: start: 20160624, end: 20160624

REACTIONS (3)
  - Sleep apnoea syndrome [None]
  - Hypersensitivity [None]
  - Dyspnoea [None]

NARRATIVE: CASE EVENT DATE: 20160624
